FAERS Safety Report 20331922 (Version 18)
Quarter: 2022Q2

REPORT INFORMATION
  Report Type: Report from Study
  Country: MX (occurrence: None)
  Receive Date: 20220113
  Receipt Date: 20220627
  Transmission Date: 20220721
  Serious: Yes (Death, Life-Threatening, Hospitalization)
  Sender: FDA-Public Use
  Company Number: MX-Eisai Medical Research-EC-2021-105625

PATIENT
  Age: 55 Year
  Sex: Female
  Weight: 67 kg

DRUGS (12)
  1. LENVATINIB [Suspect]
     Active Substance: LENVATINIB
     Indication: Clear cell renal cell carcinoma
     Route: 048
     Dates: start: 20211217, end: 20211218
  2. PEMBROLIZUMAB [Suspect]
     Active Substance: PEMBROLIZUMAB
     Indication: Clear cell renal cell carcinoma
     Route: 041
     Dates: start: 20211217, end: 20211217
  3. SIBUTRAMINE HYDROCHLORIDE [Concomitant]
     Active Substance: SIBUTRAMINE HYDROCHLORIDE
     Dates: start: 20211206, end: 20211221
  4. METOCLOPRAMIDE [Concomitant]
     Active Substance: METOCLOPRAMIDE
     Dates: start: 20211101, end: 20211221
  5. PREGABALIN [Concomitant]
     Active Substance: PREGABALIN
     Dates: start: 20211101, end: 20211221
  6. MORPHINE [Concomitant]
     Active Substance: MORPHINE
     Dates: start: 20211101, end: 20211212
  7. MORPHINE [Concomitant]
     Active Substance: MORPHINE
     Dates: start: 20211213, end: 20211220
  8. CLONIXIN LYSINE [Concomitant]
     Active Substance: CLONIXIN LYSINE
     Dates: start: 20211101, end: 20211221
  9. POLYETHYLENE GLYCOLS [Concomitant]
     Active Substance: POLYETHYLENE GLYCOLS
     Dates: start: 20211101, end: 20211221
  10. POLYETHYLENE GLYCOLS [Concomitant]
     Active Substance: POLYETHYLENE GLYCOLS
     Dates: start: 20211217, end: 20211221
  11. LEVOFLOXACIN [Concomitant]
     Active Substance: LEVOFLOXACIN
     Dates: start: 20211217, end: 20211220
  12. OLANZAPINE [Concomitant]
     Active Substance: OLANZAPINE
     Dates: start: 20211218, end: 20211221

REACTIONS (2)
  - Haemorrhage intracranial [Fatal]
  - Hypertension [Not Recovered/Not Resolved]

NARRATIVE: CASE EVENT DATE: 20211219
